FAERS Safety Report 20618865 (Version 1)
Quarter: 2022Q1

REPORT INFORMATION
  Report Type: Spontaneous
  Country: CN (occurrence: CN)
  Receive Date: 20220322
  Receipt Date: 20220322
  Transmission Date: 20220423
  Serious: Yes (Other)
  Sender: FDA-Public Use
  Company Number: CN-BAXTER-2022BAX005893

PATIENT
  Age: 55 Year
  Sex: Female
  Weight: 62 kg

DRUGS (11)
  1. CYCLOPHOSPHAMIDE [Suspect]
     Active Substance: CYCLOPHOSPHAMIDE
     Indication: Breast cancer female
     Dosage: 1-2 CHEMOTHERAPY
     Route: 041
  2. CYCLOPHOSPHAMIDE [Suspect]
     Active Substance: CYCLOPHOSPHAMIDE
     Dosage: 3RD CHEMOTHERAPY, DAY 1
     Route: 041
     Dates: start: 20220124, end: 20220124
  3. CYCLOPHOSPHAMIDE [Suspect]
     Active Substance: CYCLOPHOSPHAMIDE
     Dosage: DOSE RE-INTRODUCED
     Route: 041
  4. PACLITAXEL [Suspect]
     Active Substance: PACLITAXEL
     Indication: Breast cancer female
     Dosage: 1-2 CYCLES OF CHEMOTHERAPY
     Route: 041
  5. PACLITAXEL [Suspect]
     Active Substance: PACLITAXEL
     Dosage: 3RD CYCLE OF CHEMOTHERAPY, DAY 1
     Route: 041
     Dates: start: 20220124, end: 20220124
  6. PACLITAXEL [Suspect]
     Active Substance: PACLITAXEL
     Dosage: DOSE RE-INTRODUCED
     Route: 041
  7. TRASTUZUMAB [Suspect]
     Active Substance: TRASTUZUMAB
     Indication: Breast cancer female
     Route: 041
     Dates: start: 20220124, end: 20220124
  8. TRASTUZUMAB [Suspect]
     Active Substance: TRASTUZUMAB
     Dosage: DOSE RE-INTRODUCED
     Route: 041
  9. DEXTROSE [Concomitant]
     Active Substance: DEXTROSE
     Indication: Medication dilution
     Dosage: DEXAMETHASONE SODIUM PHOSPHATE INJECTION (20 MG) + 5% GS (250 ML)
     Route: 041
     Dates: start: 20220124
  10. DEXAMETHASONE SODIUM PHOSPHATE [Concomitant]
     Active Substance: DEXAMETHASONE SODIUM PHOSPHATE
     Indication: Product used for unknown indication
     Dosage: DEXAMETHASONE SODIUM PHOSPHATE (20 MG) + 5% GS (250 ML)
     Route: 041
     Dates: start: 20220124
  11. PROMETHAZINE HYDROCHLORIDE [Concomitant]
     Active Substance: PROMETHAZINE HYDROCHLORIDE
     Indication: Product used for unknown indication
     Route: 030
     Dates: start: 20220124

REACTIONS (9)
  - Neurotoxicity [Unknown]
  - Myelosuppression [Recovered/Resolved]
  - Myelosuppression [Recovering/Resolving]
  - Gastrointestinal disorder [Unknown]
  - Gastrointestinal toxicity [Unknown]
  - Pain in extremity [Recovering/Resolving]
  - Nausea [Recovering/Resolving]
  - Asthenia [Recovering/Resolving]
  - Decreased appetite [Recovering/Resolving]

NARRATIVE: CASE EVENT DATE: 20220126
